FAERS Safety Report 7462633-8 (Version None)
Quarter: 2011Q2

REPORT INFORMATION
  Report Type: 
  Country: None (occurrence: None)
  Receive Date: 20110506
  Receipt Date: 20110426
  Transmission Date: 20111010
  Serious: Yes (Other)
  Sender: FDA-Public Use
  Company Number: PHHY2010MX49316

PATIENT
  Age: 63 Year
  Sex: Female

DRUGS (5)
  1. EXFORGE [Suspect]
     Dosage: 160 MG OF VALSARTAN AND 10 MG OF AMLODIPINE
     Route: 048
     Dates: start: 20110422
  2. LYRICA [Concomitant]
  3. ASPIRIN [Concomitant]
  4. EXFORGE [Suspect]
     Indication: HYPERTENSION
     Dosage: 160 MG VALS AND 5 MG OF AMLO, DAILY
     Route: 048
     Dates: start: 20090120
  5. EXFORGE [Suspect]
     Dosage: 160 MG OF VALSARTAN AND 10 MG OF AMLODIPINE
     Route: 048
     Dates: start: 20100501, end: 20110419

REACTIONS (6)
  - HYPERTENSION [None]
  - CARDIOMEGALY [None]
  - HYPOTENSION [None]
  - BLOOD PRESSURE [None]
  - BLOOD PRESSURE DECREASED [None]
  - DISEASE PROGRESSION [None]
